FAERS Safety Report 12898652 (Version 3)
Quarter: 2017Q1

REPORT INFORMATION
  Report Type: Spontaneous
  Country: FR (occurrence: FR)
  Receive Date: 20161101
  Receipt Date: 20170227
  Transmission Date: 20170428
  Serious: Yes (Other)
  Sender: FDA-Public Use
  Company Number: FR-AMGEN-FRASP2016149958

PATIENT
  Age: 74 Year
  Sex: Female
  Weight: 58 kg

DRUGS (3)
  1. CRESTOR [Concomitant]
     Active Substance: ROSUVASTATIN CALCIUM
     Dosage: 5 MG, UNK
     Dates: start: 20090604
  2. UVEDOSE [Concomitant]
     Active Substance: CHOLECALCIFEROL
     Dosage: 100000 IU, UNK
     Dates: start: 20161010
  3. PROLIA [Suspect]
     Active Substance: DENOSUMAB
     Indication: OSTEOPOROSIS POSTMENOPAUSAL
     Dosage: 60 MG, UNK
     Route: 030
     Dates: start: 20160421, end: 20161017

REACTIONS (2)
  - Colitis [Recovered/Resolved]
  - Incorrect route of drug administration [Unknown]

NARRATIVE: CASE EVENT DATE: 20161010
